FAERS Safety Report 5447449-6 (Version None)
Quarter: 2007Q3

REPORT INFORMATION
  Report Type: 
  Country: None (occurrence: None)
  Receive Date: 20070905
  Receipt Date: 20070820
  Transmission Date: 20080115
  Serious: Yes (Disabling)
  Sender: FDA-Public Use
  Company Number: 8025809

PATIENT
  Age: 11 Year
  Sex: Male
  Weight: 28.4 kg

DRUGS (2)
  1. EQUASYM [Suspect]
     Indication: ATTENTION DEFICIT/HYPERACTIVITY DISORDER
     Dosage: 10 MG 1/D PO
     Route: 048
     Dates: start: 20070622, end: 20070720
  2. METHYLPHENIDATE IMMEDIATE RELEASE [Concomitant]

REACTIONS (3)
  - CONDITION AGGRAVATED [None]
  - DYSARTHRIA [None]
  - STRABISMUS [None]
